FAERS Safety Report 5565906-9 (Version None)
Quarter: 2007Q4

REPORT INFORMATION
  Report Type: 
  Country: None (occurrence: None)
  Receive Date: 20071213
  Receipt Date: 20071205
  Transmission Date: 20080405
  Serious: No
  Sender: FDA-Public Use
  Company Number: 2007-168740-NL

PATIENT
  Sex: Female

DRUGS (2)
  1. VECURONIUM BROMIDE [Suspect]
     Indication: INTUBATION
     Dosage: 6 MG ONCE INTRAVENOUS (NOS)
     Route: 042
  2. MIDAZOLAM HCL [Suspect]
     Dosage: INTRAVENOUS (NOS)
     Route: 042

REACTIONS (2)
  - NEUROMUSCULAR BLOCK PROLONGED [None]
  - QUADRIPLEGIA [None]
